FAERS Safety Report 23507884 (Version 1)
Quarter: 2024Q1

REPORT INFORMATION
  Report Type: Spontaneous
  Country: US (occurrence: None)
  Receive Date: 20240209
  Receipt Date: 20240209
  Transmission Date: 20240410
  Serious: Yes (Hospitalization)
  Sender: FDA-Public Use
  Company Number: None

PATIENT
  Age: 59 Year
  Sex: Female
  Weight: 57.2 kg

DRUGS (6)
  1. PEMBROLIZUMAB [Suspect]
     Active Substance: PEMBROLIZUMAB
     Indication: Radioimmunotherapy
     Route: 042
     Dates: start: 20231102
  2. PEMBROLIZUMAB [Suspect]
     Active Substance: PEMBROLIZUMAB
     Indication: Squamous cell carcinoma of head and neck
  3. OLAPARIB [Suspect]
     Active Substance: OLAPARIB
     Indication: Chemotherapy
     Dates: start: 20231102
  4. OLAPARIB [Suspect]
     Active Substance: OLAPARIB
     Indication: Squamous cell carcinoma of head and neck
  5. CISPLATIN [Concomitant]
     Active Substance: CISPLATIN
  6. RADIATION THERAPY [Concomitant]
     Active Substance: RADIATION THERAPY

REACTIONS (4)
  - Nausea [None]
  - Vomiting [None]
  - Pyrexia [None]
  - Radiation necrosis [None]

NARRATIVE: CASE EVENT DATE: 20240115
